FAERS Safety Report 5797915-9 (Version None)
Quarter: 2008Q2

REPORT INFORMATION
  Report Type: 
  Country: None (occurrence: None)
  Receive Date: 20080619
  Receipt Date: 20070803
  Transmission Date: 20081010
  Serious: Yes (Hospitalization)
  Sender: FDA-Public Use
  Company Number: 510241

PATIENT
  Age: 53 Year
  Sex: Female

DRUGS (3)
  1. ALLI [Suspect]
     Indication: WEIGHT CONTROL
     Dosage: 3 DOSE FORM DAILY ORAL
     Route: 048
     Dates: start: 20070619, end: 20070629
  2. BENICAR [Concomitant]
  3. THYROXINE SODIUM (LEVOTHYROXINE) [Concomitant]

REACTIONS (1)
  - PANCREATITIS [None]
